FAERS Safety Report 8415106-X (Version None)
Quarter: 2012Q2

REPORT INFORMATION
  Report Type: 
  Country: None (occurrence: None)
  Receive Date: 20120606
  Receipt Date: 20120529
  Transmission Date: 20120825
  Serious: Yes (Hospitalization)
  Sender: FDA-Public Use
  Company Number: US-ASTRAZENECA-2011SE41525

PATIENT
  Age: 51 Year
  Sex: Female
  Weight: 95.3 kg

DRUGS (37)
  1. ATACAND HCT [Concomitant]
     Dosage: 32/12.5 MG
     Dates: start: 20080409
  2. ASPIRIN [Concomitant]
     Dates: start: 20070614
  3. HYDROCHLOROTHIAZIDE [Concomitant]
     Dates: start: 20070614
  4. LIPITOR [Concomitant]
     Dates: start: 20080609
  5. KETORALAC [Concomitant]
     Dosage: 10 MILLIGRAMS BY MOUTH AS NEEDED
     Route: 048
     Dates: start: 20100105
  6. NEXIUM [Suspect]
     Route: 048
     Dates: start: 20080101
  7. ISOSORBIDE DINITRATE [Concomitant]
  8. PLAVIX [Concomitant]
  9. LORTAB/NORCO [Concomitant]
     Dosage: 10/325 MILLIGRAMS ONE BY MOUTH EVERY FOUR HOURS AS NEEDED
     Dates: start: 20100105
  10. ULTRAM [Concomitant]
     Route: 048
     Dates: start: 20100105
  11. NEXIUM [Suspect]
     Route: 048
     Dates: start: 20080409
  12. GABAPENTIN [Concomitant]
  13. BENICAR HCT [Concomitant]
     Dosage: 40/12.5MG
  14. GABAPENTIN [Concomitant]
  15. PLAVIX [Concomitant]
     Dates: start: 20070614
  16. PROVERA [Concomitant]
     Indication: HAEMOSTASIS
  17. ATACAND [Concomitant]
     Dosage: 32/12.5
     Dates: start: 20080409
  18. ISOSORBIDE DINITRATE [Concomitant]
     Dates: start: 20080409
  19. ISOSORBIDE DINITRATE [Concomitant]
     Dosage: ER 30 MG
     Dates: start: 20100105
  20. SINGULAIR [Concomitant]
  21. ASPIRIN [Concomitant]
     Dosage: DAILY
     Dates: start: 20100105
  22. HYDROCHLOROTHIAZIDE [Concomitant]
     Dates: start: 20080409
  23. OMNICEF [Concomitant]
     Dates: start: 20080507
  24. SPIRONOLACT [Concomitant]
  25. FERROUS SULFATE TAB [Concomitant]
     Indication: ANAEMIA
  26. LIDOCAINE [Concomitant]
     Indication: TRIGGER FINGER
     Dosage: 0.5CC
     Dates: start: 20081007
  27. CRESTOR [Concomitant]
     Dates: start: 20070614
  28. ASPIRIN [Concomitant]
     Dates: start: 20080409
  29. NEXIUM [Suspect]
     Route: 048
     Dates: start: 20060101
  30. BENICAR HCT [Concomitant]
     Dosage: 40/12.5 MILLIGRAMS DAILY
     Dates: start: 20100105
  31. NEXIUM [Suspect]
     Indication: GASTROOESOPHAGEAL REFLUX DISEASE
     Route: 048
     Dates: start: 20050101, end: 20120101
  32. NEXIUM [Suspect]
     Route: 048
     Dates: start: 20100105
  33. CALCIUM [Concomitant]
     Indication: OSTEOPOROSIS
     Dates: start: 20050101
  34. ATACAND HCT [Concomitant]
     Dosage: 32/12.5MG DAILY
     Route: 048
  35. LORTAB/NORCO [Concomitant]
     Indication: PAIN
     Dosage: 7.5 MG FOUR TIMES A DAY
     Dates: start: 20081007
  36. KENALOG [Concomitant]
     Indication: TRIGGER FINGER
     Dosage: 0.5 CC
     Dates: start: 20081007
  37. ULTRAM [Concomitant]
     Dates: start: 20080409

REACTIONS (9)
  - EMOTIONAL DISTRESS [None]
  - HUMERUS FRACTURE [None]
  - ANKLE FRACTURE [None]
  - OSTEOPOROSIS [None]
  - SCAR [None]
  - LOWER LIMB FRACTURE [None]
  - UPPER LIMB FRACTURE [None]
  - LIMB CRUSHING INJURY [None]
  - RADIUS FRACTURE [None]
